FAERS Safety Report 9455163 (Version 1)
Quarter: 2013Q3

REPORT INFORMATION
  Report Type: Spontaneous
  Country: US (occurrence: US)
  Receive Date: 20130813
  Receipt Date: 20130813
  Transmission Date: 20140515
  Serious: No
  Sender: FDA-Public Use
  Company Number: US-009507513-1308USA002274

PATIENT
  Sex: Female

DRUGS (18)
  1. DUONEB [Concomitant]
  2. VITAMIN D (UNSPECIFIED) [Concomitant]
  3. COMBIVENT [Concomitant]
  4. ADVAIR [Concomitant]
  5. SPIRIVA [Concomitant]
  6. CETIRIZINE HYDROCHLORIDE [Concomitant]
  7. SAPHRIS [Suspect]
     Indication: BIPOLAR DISORDER
     Dosage: 5 MG, UNK, RAPID DISSOLVE TABLET
     Route: 060
     Dates: start: 201212
  8. SAPHRIS [Suspect]
     Dosage: 10 MG, UNK
     Route: 060
     Dates: start: 201301
  9. LAMICTAL [Concomitant]
  10. LOVAZA [Concomitant]
  11. VYVANSE [Concomitant]
  12. METFORMIN [Concomitant]
  13. PRINIVIL [Concomitant]
  14. LYRICA [Concomitant]
  15. LACTULOSE [Concomitant]
  16. NEXIUM [Concomitant]
  17. LEVOTHYROXINE SODIUM [Concomitant]
  18. LIPITOR [Concomitant]

REACTIONS (1)
  - Drug ineffective [Unknown]
